FAERS Safety Report 4664358-0 (Version None)
Quarter: 2005Q2

REPORT INFORMATION
  Report Type: 
  Country: None (occurrence: None)
  Receive Date: 20050516
  Receipt Date: 20050516
  Transmission Date: 20051028
  Serious: Yes (Other)
  Sender: FDA-Public Use
  Company Number: None

PATIENT
  Age: 49 Year
  Sex: Male
  Weight: 195.2735 kg

DRUGS (11)
  1. BUPROPRION SR 200 MG GLOBAL [Suspect]
     Indication: DEPRESSION
     Dosage: 200 MG QD PO
     Dates: start: 20050426, end: 20050427
  2. BUPROPRION SR 200 MG GLOBAL [Suspect]
     Indication: DEPRESSION
     Dosage: 200 MG QD PO
     Dates: start: 20050429, end: 20050430
  3. HUMULOG U100 [Concomitant]
  4. COZAAR [Concomitant]
  5. DIGOXIN [Concomitant]
  6. PLAVIX [Concomitant]
  7. MS CONTIN [Concomitant]
  8. RELAFEN [Concomitant]
  9. BUMEX [Concomitant]
  10. VERAPAMIL [Concomitant]
  11. CLONAZEPAM [Concomitant]

REACTIONS (3)
  - MALAISE [None]
  - PHARMACEUTICAL PRODUCT COMPLAINT [None]
  - VOMITING PROJECTILE [None]
